FAERS Safety Report 24590389 (Version 1)
Quarter: 2024Q4

REPORT INFORMATION
  Report Type: Spontaneous
  Country: US (occurrence: None)
  Receive Date: 20241107
  Receipt Date: 20241107
  Transmission Date: 20250115
  Serious: Yes (Hospitalization)
  Sender: Public
  Company Number: None

PATIENT
  Age: 56 Year
  Sex: Female
  Weight: 94.5 kg

DRUGS (4)
  1. MOUNJARO [Suspect]
     Active Substance: TIRZEPATIDE
     Dosage: OTHER QUANTITY : 4 INJECTION(S);?OTHER FREQUENCY : WEEKLY;?OTHER ROUTE : STOMACH INJECTION;?
     Route: 050
     Dates: end: 20240919
  2. Acetazolomide [Concomitant]
  3. DULOXETINE [Concomitant]
     Active Substance: DULOXETINE
  4. diciclyn [Concomitant]

REACTIONS (3)
  - Throat tightness [None]
  - Abdominal pain upper [None]
  - Impaired work ability [None]

NARRATIVE: CASE EVENT DATE: 20241014
